FAERS Safety Report 23165429 (Version 2)
Quarter: 2023Q4

REPORT INFORMATION
  Report Type: Spontaneous
  Country: TH (occurrence: TH)
  Receive Date: 20231109
  Receipt Date: 20231211
  Transmission Date: 20240109
  Serious: Yes (Death, Other)
  Sender: FDA-Public Use
  Company Number: TH-AMGEN-THASP2023197060

PATIENT

DRUGS (2)
  1. BEVACIZUMAB [Suspect]
     Active Substance: BEVACIZUMAB
     Indication: Hepatocellular carcinoma
     Dosage: 15 MILLIGRAM/KG (4.0 CYCLES)
     Route: 042
  2. ATEZOLIZUMAB [Concomitant]
     Active Substance: ATEZOLIZUMAB
     Indication: Hepatocellular carcinoma
     Dosage: 1200 MILLIGRAM (4.0 CYCLES)
     Route: 065

REACTIONS (5)
  - Death [Fatal]
  - Hepatocellular carcinoma [Unknown]
  - Therapy partial responder [Unknown]
  - Drug effective for unapproved indication [Unknown]
  - Off label use [Unknown]
